FAERS Safety Report 5397487-7 (Version None)
Quarter: 2007Q3

REPORT INFORMATION
  Report Type: 
  Country: None (occurrence: None)
  Receive Date: 20070723
  Receipt Date: 20070723
  Transmission Date: 20080115
  Serious: Yes (Disabling)
  Sender: FDA-Public Use
  Company Number: None

PATIENT
  Sex: Female
  Weight: 99.7913 kg

DRUGS (1)
  1. ZYPREXA [Suspect]
     Indication: SCHIZOPHRENIA
     Dosage: CAN GET FROM DOCTOR EVERYDAY
     Dates: start: 20040101

REACTIONS (3)
  - DIABETES MELLITUS [None]
  - DYSPNOEA [None]
  - WEIGHT INCREASED [None]
